FAERS Safety Report 5649501-9 (Version None)
Quarter: 2008Q1

REPORT INFORMATION
  Report Type: 
  Country: None (occurrence: None)
  Receive Date: 20080131
  Receipt Date: 20071005
  Transmission Date: 20080703
  Serious: No
  Sender: FDA-Public Use
  Company Number: US200709003173

PATIENT
  Age: 72 Year
  Sex: Female

DRUGS (4)
  1. BYETTA [Suspect]
     Indication: TYPE 2 DIABETES MELLITUS
     Dosage: 5 UG ; 10 UG, 2/D
     Dates: start: 20070101, end: 20070901
  2. BYETTA [Suspect]
     Indication: TYPE 2 DIABETES MELLITUS
     Dosage: 5 UG ; 10 UG, 2/D
     Dates: start: 20070901
  3. BYETTA [Suspect]
     Dosage: 10 UG, SUBCUTANEOUS
     Route: 058
  4. METFORMIN HCL [Concomitant]

REACTIONS (3)
  - DRUG EFFECT DECREASED [None]
  - MALAISE [None]
  - NAUSEA [None]
